FAERS Safety Report 11913883 (Version 1)
Quarter: 2016Q1

REPORT INFORMATION
  Report Type: Spontaneous
  Country: FR (occurrence: FR)
  Receive Date: 20160113
  Receipt Date: 20160113
  Transmission Date: 20160526
  Serious: Yes (Hospitalization)
  Sender: FDA-Public Use
  Company Number: FR-SA-2016SA004174

PATIENT
  Age: 82 Year
  Sex: Female

DRUGS (16)
  1. CORDARONE [Concomitant]
     Active Substance: AMIODARONE HYDROCHLORIDE
     Route: 048
  2. TIAPRIDAL [Suspect]
     Active Substance: TIAPRIDE HYDROCHLORIDE
     Indication: DEMENTIA
     Dosage: 10 DROPS IN THE MORNING, 5 DROPS IN THE EVENING
     Route: 048
     Dates: start: 20150703, end: 20150706
  3. TIAPRIDAL [Suspect]
     Active Substance: TIAPRIDE HYDROCHLORIDE
     Indication: DEMENTIA
     Route: 042
     Dates: start: 20150702, end: 20150703
  4. SERESTA [Suspect]
     Active Substance: OXAZEPAM
     Indication: ANXIETY
     Route: 048
     Dates: start: 20150702, end: 20150706
  5. CARDENSIEL [Concomitant]
     Active Substance: BISOPROLOL FUMARATE
     Route: 048
  6. LASILIX [Concomitant]
     Active Substance: FUROSEMIDE
     Route: 048
  7. PREVISCAN [Concomitant]
     Active Substance: FLUINDIONE
     Dosage: 1/4 TH OF TABLET
     Route: 048
     Dates: end: 20150706
  8. PLAVIX [Concomitant]
     Active Substance: CLOPIDOGREL BISULFATE
     Route: 048
  9. KARDEGIC [Concomitant]
     Active Substance: ASPIRIN LYSINE
     Route: 048
  10. LEXOMIL [Concomitant]
     Active Substance: BROMAZEPAM
     Route: 048
     Dates: end: 20150630
  11. LASILIX [Concomitant]
     Active Substance: FUROSEMIDE
     Route: 065
  12. EBIXA [Concomitant]
     Active Substance: MEMANTINE HYDROCHLORIDE
     Route: 048
     Dates: start: 20150702
  13. ZOLPIDEM [Suspect]
     Active Substance: ZOLPIDEM\ZOLPIDEM TARTRATE
     Route: 048
     Dates: start: 20150702, end: 20150706
  14. VALIUM [Suspect]
     Active Substance: DIAZEPAM
     Route: 030
     Dates: start: 20150630, end: 20150630
  15. COVERSYL [Concomitant]
     Active Substance: PERINDOPRIL
     Route: 048
  16. ATORVASTATIN [Concomitant]
     Active Substance: ATORVASTATIN
     Route: 048

REACTIONS (1)
  - Coma [Recovered/Resolved]

NARRATIVE: CASE EVENT DATE: 20150706
